FAERS Safety Report 18866013 (Version 1)
Quarter: 2021Q1

REPORT INFORMATION
  Report Type: Spontaneous
  Country: US (occurrence: US)
  Receive Date: 20210209
  Receipt Date: 20210209
  Transmission Date: 20210420
  Serious: No
  Sender: FDA-Public Use
  Company Number: None

PATIENT
  Age: 24 Year
  Sex: Female
  Weight: 81 kg

DRUGS (1)
  1. DYMISTA [Suspect]
     Active Substance: AZELASTINE HYDROCHLORIDE\FLUTICASONE PROPIONATE
     Indication: RHINITIS ALLERGIC
     Dosage: ?          QUANTITY:1 SPRAY(S);OTHER ROUTE:NASAL SPRAY?
     Route: 045
     Dates: start: 20200101

REACTIONS (3)
  - Nasal dryness [None]
  - Perioral dermatitis [None]
  - Epistaxis [None]

NARRATIVE: CASE EVENT DATE: 20210101
